FAERS Safety Report 7449538-3 (Version None)
Quarter: 2011Q2

REPORT INFORMATION
  Report Type: 
  Country: None (occurrence: None)
  Receive Date: 20110502
  Receipt Date: 20110421
  Transmission Date: 20111010
  Serious: Yes (Hospitalization)
  Sender: FDA-Public Use
  Company Number: US-BAYER-2011-035216

PATIENT
  Age: 64 Year
  Sex: Female

DRUGS (1)
  1. ASPIRIN [Suspect]
     Dosage: 81 MG, QD
     Route: 048

REACTIONS (6)
  - RHINITIS [None]
  - RASH [None]
  - RHINITIS ALLERGIC [None]
  - NASAL POLYPS [None]
  - ASTHMA [None]
  - UNEVALUABLE EVENT [None]
